FAERS Safety Report 25629782 (Version 2)
Quarter: 2025Q4

REPORT INFORMATION
  Report Type: Spontaneous
  Country: EU (occurrence: EU)
  Receive Date: 20250731
  Receipt Date: 20251001
  Transmission Date: 20260118
  Serious: Yes (Hospitalization, Other)
  Sender: CELLTRION
  Company Number: EU-ROCHE-10000267919

PATIENT

DRUGS (12)
  1. RITUXIMAB [Suspect]
     Active Substance: RITUXIMAB
     Indication: Marginal zone lymphoma
     Dosage: 500 MG
     Route: 042
  2. RITUXIMAB [Suspect]
     Active Substance: RITUXIMAB
     Indication: Gastrointestinal lymphoma
     Dosage: 500 MILLIGRAM
     Route: 058
  3. GEMCITABINE [Suspect]
     Active Substance: GEMCITABINE
     Indication: Marginal zone lymphoma
     Dosage: 1400 MG
     Route: 065
  4. GEMCITABINE [Suspect]
     Active Substance: GEMCITABINE
     Indication: Gastrointestinal lymphoma
     Dosage: 1400 MILLIGRAM
     Route: 058
  5. OXALIPLATIN [Suspect]
     Active Substance: OXALIPLATIN
     Indication: Marginal zone lymphoma
     Dosage: 140 MG
     Route: 065
  6. OXALIPLATIN [Suspect]
     Active Substance: OXALIPLATIN
     Indication: Gastrointestinal lymphoma
     Dosage: 140 MILLIGRAM
     Route: 058
  7. GRANULOCYTE COLONY-STIMULATING FACTOR NOS [Suspect]
     Active Substance: GRANULOCYTE COLONY-STIMULATING FACTOR NOS
     Indication: Marginal zone lymphoma
  8. PREDNISONE [Suspect]
     Active Substance: PREDNISONE
     Indication: Gastrointestinal lymphoma
     Route: 065
  9. CYCLOPHOSPHAMIDE [Suspect]
     Active Substance: CYCLOPHOSPHAMIDE
     Indication: Gastrointestinal lymphoma
     Route: 065
  10. CYCLOPHOSPHAMIDE [Suspect]
     Active Substance: CYCLOPHOSPHAMIDE
     Indication: Chemotherapy
  11. DOXORUBICIN HYDROCHLORIDE [Suspect]
     Active Substance: DOXORUBICIN HYDROCHLORIDE
     Indication: Gastrointestinal lymphoma
     Route: 065
  12. VINCRISTINE [Suspect]
     Active Substance: VINCRISTINE
     Indication: Gastrointestinal lymphoma
     Route: 065

REACTIONS (5)
  - Intestinal obstruction [Unknown]
  - Neoplasm progression [Unknown]
  - Abdominal abscess [Unknown]
  - Intentional product use issue [Unknown]
  - Intentional product use issue [Unknown]
